FAERS Safety Report 25530182 (Version 2)
Quarter: 2025Q3

REPORT INFORMATION
  Report Type: Report from Study
  Country: MX (occurrence: MX)
  Receive Date: 20250708
  Receipt Date: 20250820
  Transmission Date: 20251021
  Serious: Yes (Other)
  Sender: NOVARTIS
  Company Number: MX-002147023-NVSC2024MX110451

PATIENT
  Age: 54 Year
  Sex: Female
  Weight: 70 kg

DRUGS (17)
  1. KISQALI [Suspect]
     Active Substance: RIBOCICLIB SUCCINATE
     Indication: Breast cancer
     Dosage: 400 MG, (2 OF 200 MG) QD
     Route: 048
  2. KISQALI [Suspect]
     Active Substance: RIBOCICLIB SUCCINATE
     Indication: Metastases to bone
     Dosage: 200 MG X 2, A DAY/AT NIGHT / SHE TAKES IT 27 DAYS AND RESTS 7 DAY
     Route: 048
     Dates: start: 202403
  3. KISQALI [Suspect]
     Active Substance: RIBOCICLIB SUCCINATE
     Indication: Bone cancer
     Dosage: 200 MG X 1, A DAY/AT NIGHT / SHE TAKES IT 27 DAYS AND RESTS 7 DAY
     Route: 048
  4. KISQALI [Suspect]
     Active Substance: RIBOCICLIB SUCCINATE
     Dosage: 200 MG, BID (ONCE A DAY, AT NIGHT)
     Route: 048
  5. KISQALI [Suspect]
     Active Substance: RIBOCICLIB SUCCINATE
     Dosage: 200 MG, BID (2X200 MG) (400 MG) (AT NIGHT)
     Route: 048
  6. KISQALI [Suspect]
     Active Substance: RIBOCICLIB SUCCINATE
     Dosage: 2 DOSAGE FORM, QD/DAILY NIGHT (200 MG), ONCE DAILY/AT NIGHT, 5 AND A HALF MONTHS AGO
     Route: 048
  7. KISQALI [Suspect]
     Active Substance: RIBOCICLIB SUCCINATE
     Route: 048
     Dates: start: 202404
  8. KISQALI [Suspect]
     Active Substance: RIBOCICLIB SUCCINATE
     Dosage: 2 DOSAGE FORM, QD
     Route: 048
     Dates: end: 202505
  9. LETROZOLE [Suspect]
     Active Substance: LETROZOLE
     Indication: Breast cancer
     Dosage: 2.5 MG, QD (DAILY IN THE MORNING)
     Route: 065
  10. LETROZOLE [Suspect]
     Active Substance: LETROZOLE
     Dosage: 2.5 MG, QD (DAILY IN THE MORNING)
     Route: 048
     Dates: start: 202403, end: 20240701
  11. LETROZOLE [Suspect]
     Active Substance: LETROZOLE
     Dosage: 1 DOSAGE FORM, QD
     Route: 048
  12. METFORMIN HYDROCHLORIDE [Concomitant]
     Active Substance: METFORMIN HYDROCHLORIDE
     Indication: Diabetes mellitus
     Dosage: 2 DOSAGE FORM, BID, ONE IN THE MORNING AND AT NIGHT
     Route: 065
  13. METFORMIN HYDROCHLORIDE [Concomitant]
     Active Substance: METFORMIN HYDROCHLORIDE
     Dosage: 850 MG, QD
     Route: 065
     Dates: end: 202403
  14. METFORMIN HYDROCHLORIDE [Concomitant]
     Active Substance: METFORMIN HYDROCHLORIDE
     Dosage: 850 MG, BID
     Route: 065
     Dates: start: 202403
  15. ENALAPRIL [Concomitant]
     Active Substance: ENALAPRIL
     Indication: Hypertension
     Route: 065
  16. GLYBURIDE [Concomitant]
     Active Substance: GLYBURIDE
     Indication: Diabetes mellitus
     Dosage: 5 MG, QD
     Route: 048
  17. LINAGLIPTIN [Concomitant]
     Active Substance: LINAGLIPTIN
     Indication: Diabetes mellitus
     Dosage: 5 MG, QD
     Route: 048

REACTIONS (30)
  - Metastases to bone [Unknown]
  - Metastasis [Unknown]
  - Skin necrosis [Not Recovered/Not Resolved]
  - Weight decreased [Recovered/Resolved]
  - Pain [Unknown]
  - Fatigue [Unknown]
  - Urticaria [Recovered/Resolved]
  - Constipation [Unknown]
  - Asthenia [Unknown]
  - Rash [Recovered/Resolved]
  - Vomiting [Recovered/Resolved]
  - Discomfort [Not Recovered/Not Resolved]
  - Pruritus [Recovered/Resolved]
  - Anxiety [Recovered/Resolved]
  - Somnolence [Not Recovered/Not Resolved]
  - Insomnia [Recovered/Resolved]
  - Nausea [Recovered/Resolved]
  - Pain in extremity [Not Recovered/Not Resolved]
  - Headache [Recovering/Resolving]
  - Appetite disorder [Recovered/Resolved]
  - Dizziness [Recovering/Resolving]
  - Body temperature abnormal [Not Recovered/Not Resolved]
  - Anger [Unknown]
  - Decreased appetite [Unknown]
  - Tooth infection [Not Recovered/Not Resolved]
  - Toothache [Not Recovered/Not Resolved]
  - Swelling face [Not Recovered/Not Resolved]
  - Gingival disorder [Not Recovered/Not Resolved]
  - Jaw disorder [Not Recovered/Not Resolved]
  - Inappropriate schedule of product administration [Unknown]

NARRATIVE: CASE EVENT DATE: 20240301
